FAERS Safety Report 9494018 (Version 2)
Quarter: 2013Q3

REPORT INFORMATION
  Report Type: Report from Study
  Country: RU (occurrence: RU)
  Receive Date: 20130903
  Receipt Date: 20130918
  Transmission Date: 20140515
  Serious: Yes (Death, Other)
  Sender: FDA-Public Use
  Company Number: RU-BRISTOL-MYERS SQUIBB COMPANY-19210624

PATIENT
  Age: 53 Year
  Sex: Male

DRUGS (3)
  1. IPILIMUMAB [Suspect]
     Indication: MALIGNANT MELANOMA
     Route: 042
     Dates: start: 20130528, end: 20130716
  2. TRAMADOL [Concomitant]
     Dates: start: 20130528
  3. AMITRIPTYLINE [Concomitant]
     Dates: start: 20130528

REACTIONS (2)
  - Malignant neoplasm progression [Fatal]
  - Tumour haemorrhage [Unknown]
